FAERS Safety Report 4357479-3 (Version None)
Quarter: 2004Q2

REPORT INFORMATION
  Report Type: 
  Country: None (occurrence: None)
  Receive Date: 20040510
  Receipt Date: 20040423
  Transmission Date: 20050107
  Serious: Yes (Death)
  Sender: FDA-Public Use
  Company Number: 2004IM00179

PATIENT
  Age: 47 Year
  Sex: Male

DRUGS (1)
  1. ADVAFERON (A643_INTERFERON ALFACON-1) [Suspect]
     Indication: HEPATITIS C
     Dosage: 12 MU; TIW; SUBCUTANEOUS
     Route: 058
     Dates: start: 20040106, end: 20040126

REACTIONS (1)
  - COMPLETED SUICIDE [None]
